FAERS Safety Report 5587476-1 (Version None)
Quarter: 2007Q4

REPORT INFORMATION
  Report Type: 
  Country: None (occurrence: None)
  Receive Date: 20071207
  Receipt Date: 20070424
  Transmission Date: 20080405
  Serious: Yes (Other)
  Sender: FDA-Public Use
  Company Number: 2007033368

PATIENT
  Age: 19 Year
  Sex: Female

DRUGS (3)
  1. VIAGRA [Suspect]
     Dates: start: 20070401
  2. CLARITIN [Concomitant]
  3. ETHANOL (ETHANOL) [Concomitant]

REACTIONS (2)
  - ERECTION INCREASED [None]
  - INTENTIONAL DRUG MISUSE [None]
